FAERS Safety Report 11595265 (Version 3)
Quarter: 2016Q1

REPORT INFORMATION
  Report Type: Report from Study
  Country: US (occurrence: US)
  Receive Date: 20151006
  Receipt Date: 20160119
  Transmission Date: 20160525
  Serious: No
  Sender: FDA-Public Use
  Company Number: US-AMGEN-USASP2015102515

PATIENT
  Age: 60 Year
  Sex: Male

DRUGS (1)
  1. ENBREL [Suspect]
     Active Substance: ETANERCEPT
     Indication: RHEUMATOID ARTHRITIS
     Dosage: 50 MG, QWK
     Route: 065
     Dates: start: 201411

REACTIONS (7)
  - Spinal disorder [Unknown]
  - Cough [Not Recovered/Not Resolved]
  - Neck pain [Unknown]
  - Increased upper airway secretion [Not Recovered/Not Resolved]
  - Productive cough [Not Recovered/Not Resolved]
  - Hypersensitivity [Unknown]
  - Paraesthesia [Unknown]

NARRATIVE: CASE EVENT DATE: 201505
